FAERS Safety Report 4704271-3 (Version None)
Quarter: 2005Q2

REPORT INFORMATION
  Report Type: 
  Country: None (occurrence: None)
  Receive Date: 20050628
  Receipt Date: 20050614
  Transmission Date: 20051028
  Serious: Yes (Other)
  Sender: FDA-Public Use
  Company Number: GB-2005-005979

PATIENT
  Sex: Female

DRUGS (1)
  1. YASMIN [Suspect]
     Dosage: 1 TAB(S), 21D/28D, ORAL
     Route: 048

REACTIONS (8)
  - DEPRESSION [None]
  - DISTURBANCE IN ATTENTION [None]
  - METRORRHAGIA [None]
  - MIGRAINE [None]
  - MOOD SWINGS [None]
  - PANIC ATTACK [None]
  - PRURITUS GENERALISED [None]
  - SUICIDAL IDEATION [None]
